FAERS Safety Report 23812943 (Version 1)
Quarter: 2024Q2

REPORT INFORMATION
  Report Type: Spontaneous
  Country: US (occurrence: US)
  Receive Date: 20240503
  Receipt Date: 20240503
  Transmission Date: 20240715
  Serious: No
  Sender: FDA-Public Use
  Company Number: US-JNJFOC-20240458157

PATIENT
  Sex: Female

DRUGS (1)
  1. TALQUETAMAB [Suspect]
     Active Substance: TALQUETAMAB
     Indication: Product used for unknown indication
     Route: 065

REACTIONS (6)
  - Ageusia [Unknown]
  - Sensory disturbance [Unknown]
  - Wound [Not Recovered/Not Resolved]
  - Dry skin [Unknown]
  - Onychoclasis [Unknown]
  - Nail disorder [Unknown]
